FAERS Safety Report 7490325-8 (Version None)
Quarter: 2011Q2

REPORT INFORMATION
  Report Type: 
  Country: None (occurrence: None)
  Receive Date: 20110519
  Receipt Date: 20110511
  Transmission Date: 20111010
  Serious: Yes (Other)
  Sender: FDA-Public Use
  Company Number: US-PFIZER INC-2010082433

PATIENT
  Sex: Male

DRUGS (12)
  1. DILANTIN [Suspect]
     Indication: CONVULSION
     Dosage: 50 MG, 1 TABLET IN THE MORNING AND 2 TABLETS AT NIGHT
     Route: 048
     Dates: start: 20051215
  2. ADVIL LIQUI-GELS [Concomitant]
     Dosage: UNK
  3. DILANTIN [Suspect]
     Dosage: 50 MG, ONE TABLET IN THE MORNING AND TWO TABLETS AT NIGHT
     Route: 048
     Dates: start: 20060105
  4. DILANTIN [Suspect]
     Dosage: 75 MG, UNK
     Route: 048
     Dates: start: 20060210, end: 20060211
  5. BENADRYL [Concomitant]
     Dosage: UNK
  6. KEPPRA [Concomitant]
     Dosage: UNK
  7. DILANTIN-125 [Suspect]
     Dosage: 37 MG, UNK
     Dates: start: 20060211, end: 20060211
  8. DILANTIN [Suspect]
     Dosage: 150 MG, 2X/DAY
     Route: 048
     Dates: start: 20060104
  9. DILANTIN-125 [Suspect]
     Indication: CONVULSION
     Dosage: 75 MG, UNK
     Dates: start: 20060210, end: 20060210
  10. TOPAMAX [Concomitant]
     Dosage: UNK
  11. DILANTIN [Suspect]
     Dosage: 37.5 MG, UNK
     Route: 048
     Dates: start: 20060211, end: 20060213
  12. GUAIFENESIN [Concomitant]
     Dosage: UNK

REACTIONS (1)
  - STEVENS-JOHNSON SYNDROME [None]
